FAERS Safety Report 17193767 (Version 1)
Quarter: 2019Q4

REPORT INFORMATION
  Report Type: Report from Study
  Country: None (occurrence: CO)
  Receive Date: 20191223
  Receipt Date: 20191223
  Transmission Date: 20200122
  Serious: Yes (Hospitalization, Other)
  Sender: FDA-Public Use
  Company Number: CO-ABBVIE-17K-036-3083674-00

PATIENT
  Age: 77 Year
  Sex: Female
  Weight: 61 kg

DRUGS (1)
  1. IMBRUVICA [Suspect]
     Active Substance: IBRUTINIB
     Indication: CHRONIC LYMPHOCYTIC LEUKAEMIA
     Route: 048
     Dates: start: 20170408

REACTIONS (6)
  - Arthralgia [Recovering/Resolving]
  - Fall [Unknown]
  - Fatigue [Recovering/Resolving]
  - Thrombosis [Unknown]
  - Rectal haemorrhage [Unknown]
  - Gastrointestinal pain [Unknown]

NARRATIVE: CASE EVENT DATE: 2017
